FAERS Safety Report 12005404 (Version 1)
Quarter: 2016Q1

REPORT INFORMATION
  Report Type: Spontaneous
  Country: JP (occurrence: JP)
  Receive Date: 20160204
  Receipt Date: 20160204
  Transmission Date: 20160526
  Serious: Yes (Hospitalization)
  Sender: FDA-Public Use
  Company Number: JP-ELI_LILLY_AND_COMPANY-JP201512004366

PATIENT
  Age: 80 Year
  Sex: Male

DRUGS (7)
  1. CRESTOR [Concomitant]
     Active Substance: ROSUVASTATIN CALCIUM
     Dosage: UNK UNK, UNKNOWN
     Route: 065
  2. SERENOA REPENS [Concomitant]
     Dosage: UNK UNK, UNKNOWN
     Route: 065
  3. PRASUGREL HYDROCHLORIDE [Suspect]
     Active Substance: PRASUGREL HYDROCHLORIDE
     Indication: PRODUCT USED FOR UNKNOWN INDICATION
     Dosage: 3.75 MG, QD
     Route: 065
  4. MAINTATE [Concomitant]
     Active Substance: BISOPROLOL FUMARATE
     Dosage: UNK UNK, UNKNOWN
     Route: 065
  5. NEXIUM [Concomitant]
     Active Substance: ESOMEPRAZOLE MAGNESIUM
     Dosage: 20 MG, QD
     Route: 048
  6. LYRICA [Concomitant]
     Active Substance: PREGABALIN
     Dosage: UNK UNK, UNKNOWN
     Route: 065
  7. HARNAL [Concomitant]
     Active Substance: TAMSULOSIN HYDROCHLORIDE
     Dosage: UNK UNK, UNKNOWN
     Route: 065

REACTIONS (2)
  - Pyrexia [Unknown]
  - Peptic ulcer [Unknown]
